FAERS Safety Report 8976991 (Version 1)
Quarter: 2012Q4

REPORT INFORMATION
  Report Type: 
  Country: US (occurrence: US)
  Receive Date: 20121220
  Receipt Date: 20121220
  Transmission Date: 20130627
  Serious: No
  Sender: FDA-Public Use
  Company Number: US-GLAXOSMITHKLINE-A0976593A

PATIENT
  Age: 69 Year
  Sex: Female

DRUGS (13)
  1. SORIATANE [Suspect]
     Indication: PSORIASIS
     Dosage: 10MG Per day
     Route: 048
     Dates: start: 20120323, end: 20120327
  2. WARFARIN [Concomitant]
  3. LISINOPRIL + HYDROCHLOROTHIAZIDE [Concomitant]
  4. TAMOXIFEN [Concomitant]
  5. DICYCLOMINE [Concomitant]
  6. OMEPRAZOLE [Concomitant]
  7. VENTOLIN [Concomitant]
  8. DOLOBID [Concomitant]
  9. TYLENOL [Concomitant]
  10. ASPIRIN [Concomitant]
  11. IMODIUM [Concomitant]
  12. VITAMINS [Concomitant]
  13. OSTEO BI-FLEX [Concomitant]

REACTIONS (4)
  - Skin exfoliation [Unknown]
  - Dizziness [Unknown]
  - Nausea [Unknown]
  - Skin exfoliation [Unknown]
